FAERS Safety Report 14082218 (Version 1)
Quarter: 2017Q4

REPORT INFORMATION
  Report Type: Spontaneous
  Country: US (occurrence: US)
  Receive Date: 20171013
  Receipt Date: 20171013
  Transmission Date: 20180321
  Serious: Yes (Hospitalization, Disabling, Other)
  Sender: FDA-Public Use
  Company Number: US-GLAXOSMITHKLINE-US2017156794

PATIENT
  Age: 59 Year
  Sex: Male

DRUGS (10)
  1. LORATADINE. [Concomitant]
     Active Substance: LORATADINE
  2. NORVIR [Concomitant]
     Active Substance: RITONAVIR
  3. FENOFIBRATE. [Concomitant]
     Active Substance: FENOFIBRATE
  4. EPZICOM [Suspect]
     Active Substance: ABACAVIR SULFATE\LAMIVUDINE
     Indication: HIV INFECTION
     Dosage: 1 DF, QD
  5. PRAVASTATIN. [Concomitant]
     Active Substance: PRAVASTATIN
  6. REYATAZ [Concomitant]
     Active Substance: ATAZANAVIR SULFATE
  7. ATENOLOL. [Concomitant]
     Active Substance: ATENOLOL
  8. LISINOPRIL. [Concomitant]
     Active Substance: LISINOPRIL
  9. ASPIRIN. [Concomitant]
     Active Substance: ASPIRIN
  10. VALSARTAN. [Concomitant]
     Active Substance: VALSARTAN

REACTIONS (3)
  - Cerebrovascular accident [Recovering/Resolving]
  - Physical disability [Not Recovered/Not Resolved]
  - Hemiplegia [Unknown]

NARRATIVE: CASE EVENT DATE: 20150517
